FAERS Safety Report 7712321-5 (Version None)
Quarter: 2011Q3

REPORT INFORMATION
  Report Type: 
  Country: None (occurrence: None)
  Receive Date: 20110826
  Receipt Date: 20110818
  Transmission Date: 20111222
  Serious: Yes (Other)
  Sender: FDA-Public Use
  Company Number: JP-ROCHE-711738

PATIENT
  Sex: Female
  Weight: 63 kg

DRUGS (5)
  1. DOCETAXEL [Suspect]
     Indication: LUNG ADENOCARCINOMA METASTATIC
     Route: 041
     Dates: start: 20091202, end: 20110215
  2. AVASTIN [Suspect]
     Indication: LUNG ADENOCARCINOMA METASTATIC
     Route: 041
     Dates: start: 20091202, end: 20100106
  3. AVASTIN [Suspect]
     Route: 041
     Dates: start: 20100301, end: 20110215
  4. CARBOPLATIN [Concomitant]
     Dosage: AUC: 6
     Route: 041
     Dates: start: 20091202, end: 20110215
  5. EMEND [Concomitant]
     Route: 048
     Dates: start: 20100302, end: 20100304

REACTIONS (4)
  - NEUTROPHIL COUNT DECREASED [None]
  - PALMAR-PLANTAR ERYTHRODYSAESTHESIA SYNDROME [None]
  - WHITE BLOOD CELL COUNT DECREASED [None]
  - THROMBOCYTOPENIA [None]
